FAERS Safety Report 6298662-X (Version None)
Quarter: 2009Q3

REPORT INFORMATION
  Report Type: 
  Country: None (occurrence: None)
  Receive Date: 20090804
  Receipt Date: 20090722
  Transmission Date: 20100115
  Serious: Yes (Death, Hospitalization)
  Sender: FDA-Public Use
  Company Number: 237980K09USA

PATIENT
  Age: 58 Year
  Sex: Female

DRUGS (2)
  1. REBIF [Suspect]
     Indication: MULTIPLE SCLEROSIS
     Dosage: 44 MCG, 3 IN 1 WEEKS, SUBCUTANEOUS
     Route: 058
     Dates: start: 20070709, end: 20090104
  2. UNSPECIFIED MEDICATIONS (ALL OTHER THERAPEUTIC PRODUCTS) [Concomitant]

REACTIONS (9)
  - ABDOMINAL PAIN [None]
  - AGITATION [None]
  - FALL [None]
  - FEEDING TUBE COMPLICATION [None]
  - HALLUCINATION [None]
  - INCOHERENT [None]
  - RESPIRATORY ARREST [None]
  - SEPSIS [None]
  - URINARY TRACT INFECTION [None]
